FAERS Safety Report 7646223-X (Version None)
Quarter: 2011Q3

REPORT INFORMATION
  Report Type: 
  Country: None (occurrence: None)
  Receive Date: 20110801
  Receipt Date: 20110721
  Transmission Date: 20111222
  Serious: No
  Sender: FDA-Public Use
  Company Number: US-BIOGENIDEC-2011BI027611

PATIENT
  Sex: Female

DRUGS (4)
  1. TYSABRI [Suspect]
     Indication: MULTIPLE SCLEROSIS
     Route: 042
     Dates: start: 20110711
  2. EFFEXOR [Concomitant]
     Indication: DEPRESSION
  3. TYSABRI [Suspect]
     Route: 042
     Dates: start: 20090205, end: 20100701
  4. MELATONIN [Concomitant]
     Indication: INSOMNIA

REACTIONS (5)
  - BALANCE DISORDER [None]
  - MULTIPLE SCLEROSIS [None]
  - MUSCULAR WEAKNESS [None]
  - POSTURE ABNORMAL [None]
  - FEELING ABNORMAL [None]
